FAERS Safety Report 6095839-3 (Version None)
Quarter: 2009Q1

REPORT INFORMATION
  Report Type: 
  Country: None (occurrence: None)
  Receive Date: 20090227
  Receipt Date: 20080821
  Transmission Date: 20090719
  Serious: No
  Sender: FDA-Public Use
  Company Number: A0734758A

PATIENT
  Age: 50 Year
  Sex: Female

DRUGS (2)
  1. LAMICTAL [Suspect]
     Dosage: 200MG PER DAY
     Route: 048
  2. LAMICTAL [Suspect]
     Indication: DRUG USE FOR UNKNOWN INDICATION
     Route: 048

REACTIONS (3)
  - DIZZINESS [None]
  - HEADACHE [None]
  - PRODUCT QUALITY ISSUE [None]
